FAERS Safety Report 6259948-8 (Version None)
Quarter: 2009Q3

REPORT INFORMATION
  Report Type: 
  Country: None (occurrence: None)
  Receive Date: 20090706
  Receipt Date: 20090706
  Transmission Date: 20100115
  Serious: Yes (Life-Threatening)
  Sender: FDA-Public Use
  Company Number: None

PATIENT
  Age: 51 Year
  Sex: Female
  Weight: 62.1428 kg

DRUGS (4)
  1. CHANTIX [Suspect]
     Indication: SMOKING CESSATION THERAPY
     Dosage: NOT SURE THREW IT AWAY 1 A DAY I THINK
     Dates: start: 20080710, end: 20080810
  2. CHANTIX [Suspect]
     Indication: SMOKING CESSATION THERAPY
     Dosage: NOT SURE THREW IT AWAY 1 A DAY I THINK
     Dates: start: 20090107, end: 20090129
  3. VICODIN [Concomitant]
  4. LORTAB [Concomitant]

REACTIONS (3)
  - DEPRESSION [None]
  - FEELING ABNORMAL [None]
  - SUICIDAL IDEATION [None]
